FAERS Safety Report 16869465 (Version 1)
Quarter: 2019Q3

REPORT INFORMATION
  Report Type: Spontaneous
  Country: US (occurrence: US)
  Receive Date: 20190930
  Receipt Date: 20190930
  Transmission Date: 20191005
  Serious: Yes (Hospitalization)
  Sender: FDA-Public Use
  Company Number: US-KERYX BIOPHARMA UK LTD-2019US005750

PATIENT
  Age: 69 Year
  Sex: Male

DRUGS (1)
  1. AURYXIA [Suspect]
     Active Substance: TETRAFERRIC TRICITRATE DECAHYDRATE
     Indication: HYPERPHOSPHATAEMIA
     Dosage: 2 GRAM (TABLET), WITH MEALS
     Route: 048

REACTIONS (4)
  - Prostatomegaly [Unknown]
  - Product residue present [Unknown]
  - Urinary tract infection [Unknown]
  - Constipation [Unknown]
